FAERS Safety Report 16723348 (Version 1)
Quarter: 2019Q3

REPORT INFORMATION
  Report Type: Spontaneous
  Country: GB (occurrence: GB)
  Receive Date: 20190821
  Receipt Date: 20190821
  Transmission Date: 20191005
  Serious: Yes (Other)
  Sender: FDA-Public Use
  Company Number: GB-AUROBINDO-AUR-APL-2019-053380

PATIENT

DRUGS (5)
  1. AZITHROMYCIN ANHYDROUS. [Suspect]
     Active Substance: AZITHROMYCIN ANHYDROUS
     Dosage: 1 GRAM (ON DAY 1 AND DAY 7)
     Route: 065
     Dates: start: 20180628
  2. AZITHROMYCIN ANHYDROUS. [Suspect]
     Active Substance: AZITHROMYCIN ANHYDROUS
     Indication: VULVOVAGINITIS CHLAMYDIAL
     Dosage: 1 GRAM
     Route: 065
     Dates: start: 201801
  3. AZITHROMYCIN ANHYDROUS. [Suspect]
     Active Substance: AZITHROMYCIN ANHYDROUS
     Dosage: 1 GRAM
     Route: 065
     Dates: start: 20180223
  4. DOXYCYCLINE. [Suspect]
     Active Substance: DOXYCYCLINE
     Indication: VULVOVAGINITIS CHLAMYDIAL
     Dosage: 100 MILLIGRAM, TWO TIMES A DAY (7 DAYS)
     Route: 065
     Dates: start: 20180518
  5. DOXYCYCLINE. [Suspect]
     Active Substance: DOXYCYCLINE
     Dosage: 100 MILLIGRAM, TWO TIMES A DAY (FOR 2 WEEKS)
     Route: 065
     Dates: start: 20180628

REACTIONS (5)
  - Vaginal discharge [Recovered/Resolved]
  - Drug resistance [Recovered/Resolved]
  - Metrorrhagia [Recovered/Resolved]
  - Chlamydial infection [Recovered/Resolved]
  - Abdominal pain lower [Recovered/Resolved]

NARRATIVE: CASE EVENT DATE: 201801
